FAERS Safety Report 5714226-8 (Version None)
Quarter: 2008Q2

REPORT INFORMATION
  Report Type: 
  Country: None (occurrence: None)
  Receive Date: 20080423
  Receipt Date: 20080207
  Transmission Date: 20081010
  Serious: No
  Sender: FDA-Public Use
  Company Number: US-KINGPHARMUSA00001-K200800172

PATIENT

DRUGS (4)
  1. SKELAXIN [Suspect]
     Indication: BACK PAIN
     Dosage: 400 TO 800 MG, QD, PRN
     Route: 048
  2. SOMA [Concomitant]
     Indication: BACK PAIN
     Dosage: 175 OT 350 MG, PRN
  3. CELEBREX [Concomitant]
     Indication: BACK PAIN
     Dosage: 200 MG, QD
  4. VICODIN ES [Concomitant]
     Indication: BACK PAIN
     Dosage: 1/2 TO 1 TABLET, BID, PRN

REACTIONS (5)
  - FEELING OF RELAXATION [None]
  - HEADACHE [None]
  - NAUSEA [None]
  - SOMNOLENCE [None]
  - WITHDRAWAL SYNDROME [None]
